FAERS Safety Report 11191383 (Version 5)
Quarter: 2016Q2

REPORT INFORMATION
  Report Type: Spontaneous
  Country: US (occurrence: US)
  Receive Date: 20150616
  Receipt Date: 20160627
  Transmission Date: 20160815
  Serious: Yes (Death, Hospitalization)
  Sender: FDA-Public Use
  Company Number: PHHY2015US069625

PATIENT
  Age: 41 Year
  Sex: Female
  Weight: 61.8 kg

DRUGS (6)
  1. CARBAMAZEPINE. [Suspect]
     Active Substance: CARBAMAZEPINE
     Indication: PRODUCT USED FOR UNKNOWN INDICATION
     Dosage: UNK
     Route: 065
  2. METHAMPHETAMINE [Concomitant]
     Active Substance: METHAMPHETAMINE
     Indication: PRODUCT USED FOR UNKNOWN INDICATION
     Dosage: UNK
     Route: 065
  3. LITHIUM. [Concomitant]
     Active Substance: LITHIUM
     Indication: PRODUCT USED FOR UNKNOWN INDICATION
     Dosage: UNK
     Route: 065
  4. ACETYLSALICYLIC ACID [Concomitant]
     Active Substance: ASPIRIN
     Indication: PRODUCT USED FOR UNKNOWN INDICATION
     Dosage: UNK
     Route: 065
  5. VALPROIC ACID. [Concomitant]
     Active Substance: VALPROIC ACID
     Indication: SEIZURE
     Dosage: UNK
     Route: 065
  6. ACETAMINOPHEN. [Concomitant]
     Active Substance: ACETAMINOPHEN
     Indication: PRODUCT USED FOR UNKNOWN INDICATION
     Dosage: UNK
     Route: 065

REACTIONS (8)
  - Cardiac arrest [Fatal]
  - Drug level increased [Unknown]
  - Unresponsive to stimuli [Fatal]
  - Haemodynamic instability [Unknown]
  - Hypotension [Fatal]
  - Intentional overdose [Fatal]
  - Brain injury [Fatal]
  - Acidosis [Fatal]
